FAERS Safety Report 9698489 (Version 6)
Quarter: 2013Q4

REPORT INFORMATION
  Report Type: Report from Study
  Country: US (occurrence: US)
  Receive Date: 20131120
  Receipt Date: 20131230
  Transmission Date: 20140711
  Serious: Yes (Hospitalization)
  Sender: FDA-Public Use
  Company Number: US-ACTELION-A-NJ2013-90503

PATIENT
  Age: 26 Year
  Sex: Male

DRUGS (6)
  1. VELETRI [Suspect]
     Indication: PULMONARY ARTERIAL HYPERTENSION
     Dosage: 15 NG/KG, PER MIN
     Route: 042
     Dates: start: 201311
  2. VELETRI [Suspect]
     Dosage: 6 NG/KG, PER MIN
     Route: 042
     Dates: start: 20131024
  3. LETAIRIS [Concomitant]
     Dosage: 10 MG, UNK
  4. SILDENAFIL [Concomitant]
  5. LASIX [Concomitant]
     Dosage: 100 MG, BID
  6. KCL [Concomitant]
     Dosage: 40 MEQ, UNK

REACTIONS (24)
  - Oropharyngeal pain [Unknown]
  - Pain in extremity [Unknown]
  - Anxiety [Unknown]
  - Back pain [Unknown]
  - Vomiting [Unknown]
  - Diarrhoea [Unknown]
  - Nausea [Unknown]
  - Headache [Unknown]
  - Chest pain [Unknown]
  - Palpitations [Unknown]
  - Hypertension [Unknown]
  - Acne [Unknown]
  - Dizziness [Recovering/Resolving]
  - Abdominal pain [Recovering/Resolving]
  - Dyspnoea [Unknown]
  - Fatigue [Recovered/Resolved]
  - Asthenia [Recovered/Resolved]
  - Hypoaesthesia [Recovered/Resolved]
  - Dyspnoea exertional [Recovering/Resolving]
  - Pain in jaw [Unknown]
  - Rash [Unknown]
  - Rash pruritic [Unknown]
  - Pain [Unknown]
  - Device leakage [Unknown]
